FAERS Safety Report 20956036 (Version 4)
Quarter: 2024Q2

REPORT INFORMATION
  Report Type: Spontaneous
  Country: US (occurrence: None)
  Receive Date: 20220614
  Receipt Date: 20240613
  Transmission Date: 20240715
  Serious: No
  Sender: FDA-Public Use
  Company Number: US-MDD US Operations-MDD202202-000188

PATIENT
  Age: 74 Year
  Sex: Male

DRUGS (2)
  1. APOKYN [Suspect]
     Active Substance: APOMORPHINE HYDROCHLORIDE
     Indication: Parkinson^s disease
  2. APOKYN [Suspect]
     Active Substance: APOMORPHINE HYDROCHLORIDE
     Route: 058

REACTIONS (5)
  - Dysstasia [Unknown]
  - Agitation [Unknown]
  - Fall [Unknown]
  - Somnolence [Recovering/Resolving]
  - Loss of therapeutic response [Unknown]

NARRATIVE: CASE EVENT DATE: 20220929
